FAERS Safety Report 15268589 (Version 2)
Quarter: 2018Q4

REPORT INFORMATION
  Report Type: Spontaneous
  Country: DE (occurrence: DE)
  Receive Date: 20180812
  Receipt Date: 20181009
  Transmission Date: 20190204
  Serious: Yes (Hospitalization)
  Sender: FDA-Public Use
  Company Number: PHHY2015DE178144

PATIENT

DRUGS (9)
  1. LEVETIRACETAM UCB [Suspect]
     Active Substance: LEVETIRACETAM
     Dosage: 1750 MG, BID, INCREASED UP TO 1750 MG TWICE DAILY
     Route: 065
  2. VIMPAT [Suspect]
     Active Substance: LACOSAMIDE
     Indication: SEIZURE
     Dosage: 600 MG, QD, 300 MG, 2X/DAY (BID)
     Route: 065
  3. BRIVIACT [Suspect]
     Active Substance: BRIVARACETAM
     Indication: PRODUCT USED FOR UNKNOWN INDICATION
     Dosage: 100 MG, 2X/DAY (BID)
     Route: 065
  4. LEVETIRACETAM UCB [Suspect]
     Active Substance: LEVETIRACETAM
     Indication: SEIZURE
     Dosage: 2000 MG, QD, 1000 MG, 2X/DAY (BID)
     Route: 065
  5. FAUSTAN [Concomitant]
     Active Substance: DIAZEPAM
     Indication: AGITATION
     Dosage: 10 MG, PRN
     Route: 065
  6. LEVETIRACETAM UCB [Suspect]
     Active Substance: LEVETIRACETAM
     Dosage: 1000 MG, QD
     Route: 065
  7. VIMPAT [Suspect]
     Active Substance: LACOSAMIDE
     Dosage: 300-0-350MG
     Route: 065
  8. VIMPAT [Suspect]
     Active Substance: LACOSAMIDE
     Dosage: 400 MG, QD, 200 MG, 2X/DAY (BID)
     Route: 065
  9. LEVETIRACETAM. [Suspect]
     Active Substance: LEVETIRACETAM
     Indication: SEIZURE
     Dosage: UNK
     Route: 065

REACTIONS (10)
  - Nightmare [Unknown]
  - Petit mal epilepsy [Unknown]
  - Blood pressure increased [Unknown]
  - Feeling abnormal [Unknown]
  - Aura [Unknown]
  - Overdose [Unknown]
  - Palpitations [Unknown]
  - Drug ineffective [Unknown]
  - Seizure [Unknown]
  - Off label use [Unknown]

NARRATIVE: CASE EVENT DATE: 201808
